FAERS Safety Report 8009426-0 (Version None)
Quarter: 2011Q4

REPORT INFORMATION
  Report Type: 
  Country: None (occurrence: None)
  Receive Date: 20111227
  Receipt Date: 20080125
  Transmission Date: 20120403
  Serious: Yes (Other)
  Sender: FDA-Public Use
  Company Number: ES-SANTEN INC.-INC-11-000176

PATIENT
  Age: 68 Year
  Sex: Female

DRUGS (1)
  1. TIMOLOL MALEATE [Suspect]
     Indication: INTRAOCULAR PRESSURE INCREASED
     Route: 047

REACTIONS (3)
  - HYPOTONY OF EYE [None]
  - CHOROIDAL DETACHMENT [None]
  - MACULOPATHY [None]
